FAERS Safety Report 23303980 (Version 1)
Quarter: 2023Q4

REPORT INFORMATION
  Report Type: Report from Study
  Country: US (occurrence: US)
  Receive Date: 20231215
  Receipt Date: 20231215
  Transmission Date: 20240110
  Serious: Yes (Other)
  Sender: FDA-Public Use
  Company Number: US-BAYER-2023A148284

PATIENT
  Age: 57 Year
  Sex: Male

DRUGS (1)
  1. NUBEQA [Suspect]
     Active Substance: DAROLUTAMIDE
     Dosage: 600 MG, BID

REACTIONS (5)
  - Erectile dysfunction [Not Recovered/Not Resolved]
  - Dizziness [None]
  - Hot flush [Recovering/Resolving]
  - Product dose omission issue [None]
  - Product dose omission in error [None]
